FAERS Safety Report 10679799 (Version 2)
Quarter: 2015Q1

REPORT INFORMATION
  Report Type: Spontaneous
  Country: BR (occurrence: BR)
  Receive Date: 20141229
  Receipt Date: 20150329
  Transmission Date: 20150720
  Serious: Yes (Other)
  Sender: FDA-Public Use
  Company Number: PHHY2014BR168832

PATIENT
  Sex: Male
  Weight: 79.6 kg

DRUGS (9)
  1. TEGRETOL-XR [Suspect]
     Active Substance: CARBAMAZEPINE
     Indication: SYNCOPE
  2. GARDENAL [Suspect]
     Active Substance: PHENOBARBITAL
     Indication: PRODUCT USED FOR UNKNOWN INDICATION
     Dosage: 1 DF, QD
     Route: 065
  3. RIVOTRIL [Suspect]
     Active Substance: CLONAZEPAM
     Indication: PRODUCT USED FOR UNKNOWN INDICATION
     Dosage: 1 DF, QD
     Route: 065
  4. TEGRETOL-XR [Suspect]
     Active Substance: CARBAMAZEPINE
     Indication: VEIN DISORDER
     Dosage: 3 DF, TID
     Route: 048
  5. TEGRETOL-XR [Suspect]
     Active Substance: CARBAMAZEPINE
     Indication: SEIZURE
  6. TEGRETOL-XR [Suspect]
     Active Substance: CARBAMAZEPINE
     Indication: DIZZINESS
  7. TEGRETOL [Suspect]
     Active Substance: CARBAMAZEPINE
     Dosage: INCREASED THE DOSE
     Route: 065
  8. TEGRETOL-XR [Suspect]
     Active Substance: CARBAMAZEPINE
     Indication: PETIT MAL EPILEPSY
  9. TEGRETOL [Suspect]
     Active Substance: CARBAMAZEPINE
     Indication: PRODUCT USED FOR UNKNOWN INDICATION
     Dosage: UNK
     Route: 065

REACTIONS (9)
  - Somnolence [Not Recovered/Not Resolved]
  - Memory impairment [Not Recovered/Not Resolved]
  - Agitation [Recovering/Resolving]
  - Asthenia [Recovering/Resolving]
  - Sexual dysfunction [Recovered/Resolved]
  - Nervousness [Recovering/Resolving]
  - Product use issue [Unknown]
  - Petit mal epilepsy [Not Recovered/Not Resolved]
  - Syncope [Recovered/Resolved]
